FAERS Safety Report 6697757-6 (Version None)
Quarter: 2010Q2

REPORT INFORMATION
  Report Type: 
  Country: None (occurrence: None)
  Receive Date: 20100423
  Receipt Date: 20100413
  Transmission Date: 20101027
  Serious: Yes (Other)
  Sender: FDA-Public Use
  Company Number: 1000013314

PATIENT
  Age: 45 Year
  Sex: Female

DRUGS (3)
  1. CITALOPRAM HYDROBROMIDE [Suspect]
     Indication: DEPRESSION
     Dosage: 20 MG (20 MG, 1 IN 1 D), ORAL
     Route: 048
     Dates: start: 20030101, end: 20080101
  2. CITALOPRAM HYDROBROMIDE [Suspect]
     Indication: DEPRESSION
     Dosage: 40 MG (40 MG, 1 IN 1 D), ORAL
     Route: 048
     Dates: start: 20080101, end: 20090401
  3. SEROQUEL [Concomitant]

REACTIONS (8)
  - CUSHINGOID [None]
  - EPISTAXIS [None]
  - GASTROINTESTINAL DISORDER [None]
  - HOT FLUSH [None]
  - HYPERTENSION [None]
  - OEDEMA PERIPHERAL [None]
  - PALPITATIONS [None]
  - SWELLING [None]
